FAERS Safety Report 20072689 (Version 1)
Quarter: 2021Q4

REPORT INFORMATION
  Report Type: Spontaneous
  Country: GR (occurrence: GR)
  Receive Date: 20211116
  Receipt Date: 20211116
  Transmission Date: 20220303
  Serious: Yes (Hospitalization, Other)
  Sender: FDA-Public Use
  Company Number: GR-MLMSERVICE-20211029-3192819-1

PATIENT
  Age: 50 Year
  Sex: Male

DRUGS (4)
  1. PACLITAXEL [Suspect]
     Active Substance: PACLITAXEL
     Indication: Penile squamous cell carcinoma
     Dosage: CUMULATIVE DOSE: 175 MG/M2
  2. CISPLATIN [Concomitant]
     Active Substance: CISPLATIN
     Indication: Penile squamous cell carcinoma
     Dosage: SCHEDULED FROM DAY 1 TO DAY 3
  3. IFOSFAMIDE [Concomitant]
     Active Substance: IFOSFAMIDE
     Indication: Penile squamous cell carcinoma
     Dosage: SCHEDULED FROM DAY 1 TO DAY 3
  4. DEXAMETHASONE [Concomitant]
     Active Substance: DEXAMETHASONE
     Indication: Premedication

REACTIONS (2)
  - Pulmonary toxicity [Recovered/Resolved]
  - Interstitial lung disease [Recovered/Resolved]
